FAERS Safety Report 4621798-3 (Version None)
Quarter: 2005Q1

REPORT INFORMATION
  Report Type: 
  Country: None (occurrence: None)
  Receive Date: 20050329
  Receipt Date: 20050302
  Transmission Date: 20050727
  Serious: Yes (Other)
  Sender: FDA-Public Use
  Company Number: US-ROCHE-397432

PATIENT
  Age: 15 Year
  Sex: Male
  Weight: 67.1 kg

DRUGS (1)
  1. ACCUTANE [Suspect]
     Indication: ACNE
     Route: 048
     Dates: start: 20041101

REACTIONS (6)
  - AORTIC DILATATION [None]
  - ARTERIAL DISORDER [None]
  - CAROTID ARTERY DISEASE [None]
  - CORONARY ARTERY DISEASE [None]
  - PULMONARY ARTERY DILATATION [None]
  - TACHYCARDIA [None]
